FAERS Safety Report 8618090-9 (Version None)
Quarter: 2012Q3

REPORT INFORMATION
  Report Type: 
  Country: None (occurrence: None)
  Receive Date: 20120824
  Receipt Date: 20120419
  Transmission Date: 20120928
  Serious: No
  Sender: FDA-Public Use
  Company Number: US-ASTRAZENECA-2012SE26254

PATIENT
  Age: 63 Year
  Sex: Male

DRUGS (3)
  1. SYMBICORT [Suspect]
     Dosage: 160/4.5 MCG , UNKNOWN FREQUENCY
     Route: 055
  2. PREDNISONE TAB [Concomitant]
  3. SYMBICORT [Suspect]
     Dosage: 80/4.5 MCG , UNKNOWN FREQUENCY
     Route: 055

REACTIONS (2)
  - INCREASED APPETITE [None]
  - INTENTIONAL DRUG MISUSE [None]
